FAERS Safety Report 23645411 (Version 2)
Quarter: 2024Q1

REPORT INFORMATION
  Report Type: Report from Study
  Country: BE (occurrence: BE)
  Receive Date: 20240318
  Receipt Date: 20240320
  Transmission Date: 20240409
  Serious: Yes (Hospitalization)
  Sender: FDA-Public Use
  Company Number: BE-JNJFOC-20240331533

PATIENT
  Age: 72 Year
  Sex: Male
  Weight: 51 kg

DRUGS (2)
  1. IMBRUVICA [Suspect]
     Active Substance: IBRUTINIB
     Indication: Product used for unknown indication
     Route: 048
  2. TEMOCILLIN [Concomitant]
     Active Substance: TEMOCILLIN
     Indication: Product used for unknown indication
     Route: 042
     Dates: start: 20240308, end: 20240311

REACTIONS (1)
  - Prostate infection [Recovering/Resolving]

NARRATIVE: CASE EVENT DATE: 20240308
